FAERS Safety Report 23405442 (Version 2)
Quarter: 2024Q1

REPORT INFORMATION
  Report Type: Spontaneous
  Country: US (occurrence: US)
  Receive Date: 20240116
  Receipt Date: 20240122
  Transmission Date: 20240409
  Serious: Yes (Other)
  Sender: FDA-Public Use
  Company Number: US-BRISTOL-MYERS SQUIBB COMPANY-2024-006953

PATIENT
  Age: 68 Year
  Sex: Female

DRUGS (2)
  1. POMALYST [Suspect]
     Active Substance: POMALIDOMIDE
     Indication: Plasma cell myeloma
     Dosage: TAKE 1 WHOLE CAPSULE BY MOUTH ON EMPTY STOMACH AT THE SAME TIME EVERY DAY FOR 21 DAYS FOLLOWED BY 7
     Route: 048
     Dates: start: 20231026
  2. POMALYST [Suspect]
     Active Substance: POMALIDOMIDE

REACTIONS (3)
  - Full blood count decreased [Recovering/Resolving]
  - Rash [Recovered/Resolved]
  - White blood cell count decreased [Recovering/Resolving]
